FAERS Safety Report 24034467 (Version 3)
Quarter: 2024Q3

REPORT INFORMATION
  Report Type: Spontaneous
  Country: ZA (occurrence: ZA)
  Receive Date: 20240701
  Receipt Date: 20240912
  Transmission Date: 20241016
  Serious: Yes (Other)
  Sender: HETERO
  Company Number: ZA-AMAROX PHARMA-HET2024ZA02021

PATIENT
  Age: 53 Year
  Sex: Female
  Weight: 56 kg

DRUGS (2)
  1. FINGOLIMOD [Suspect]
     Active Substance: FINGOLIMOD
     Indication: Multiple sclerosis
     Dosage: 0.5 MILLIGRAM (SECOND DOSE TONIGHT)
     Route: 048
     Dates: start: 20240520
  2. FINGOLIMOD [Suspect]
     Active Substance: FINGOLIMOD
     Dosage: 0.25 MILLIGRAM
     Route: 048
     Dates: start: 20240521

REACTIONS (3)
  - Toxicity to various agents [Recovered/Resolved]
  - Dizziness [Recovered/Resolved]
  - Dizziness [Recovered/Resolved]

NARRATIVE: CASE EVENT DATE: 20240620
